FAERS Safety Report 5031304-X (Version None)
Quarter: 2006Q2

REPORT INFORMATION
  Report Type: 
  Country: None (occurrence: None)
  Receive Date: 20060621
  Receipt Date: 20060616
  Transmission Date: 20061013
  Serious: Yes (Death)
  Sender: FDA-Public Use
  Company Number: 2006UW12891

PATIENT
  Age: 51 Year
  Sex: Female
  Weight: 100 kg

DRUGS (16)
  1. SEROQUEL [Suspect]
     Route: 048
  2. SKELAXIN [Suspect]
  3. EFFEXOR [Concomitant]
  4. DOXYCYCLINE [Concomitant]
  5. PREMARIN [Concomitant]
  6. LASIX [Concomitant]
  7. ZYRTEC [Concomitant]
  8. NAPROXEN [Concomitant]
  9. POTASSIUM [Concomitant]
  10. METRONIDAZOLE [Concomitant]
  11. SPIRONOLACTONE [Concomitant]
  12. TRAZODONE HCL [Concomitant]
  13. CHLORZOXAZONE [Concomitant]
  14. ALDARA [Concomitant]
  15. NICOTINE [Concomitant]
  16. IMITREX [Concomitant]

REACTIONS (1)
  - HYPERTHERMIA MALIGNANT [None]
